FAERS Safety Report 19952567 (Version 3)
Quarter: 2022Q2

REPORT INFORMATION
  Report Type: Report from Study
  Country: US (occurrence: US)
  Receive Date: 20211013
  Receipt Date: 20220517
  Transmission Date: 20220720
  Serious: Yes (Other)
  Sender: FDA-Public Use
  Company Number: US-NOVARTISPH-NVSC2021US233584

PATIENT
  Sex: Male

DRUGS (1)
  1. ENTRESTO [Suspect]
     Active Substance: SACUBITRIL\VALSARTAN
     Indication: Cardiac failure
     Dosage: UNK, BID
     Route: 048

REACTIONS (7)
  - Diabetes mellitus [Unknown]
  - Blood cholesterol decreased [Unknown]
  - Heart rate decreased [Unknown]
  - Suspected COVID-19 [Unknown]
  - Fatigue [Unknown]
  - Cough [Unknown]
  - Blood pressure decreased [Unknown]
